FAERS Safety Report 26077942 (Version 1)
Quarter: 2025Q4

REPORT INFORMATION
  Report Type: Spontaneous
  Country: US (occurrence: US)
  Receive Date: 20251122
  Receipt Date: 20251122
  Transmission Date: 20260117
  Serious: No
  Sender: MDD OPERATIONS
  Company Number: US-MDD US Operations-MDD202509-003890

PATIENT
  Age: 63 Year
  Sex: Male

DRUGS (3)
  1. ONAPGO [Suspect]
     Active Substance: APOMORPHINE HYDROCHLORIDE
     Indication: Parkinson^s disease
     Dosage: CONTINUOUS FOR 16 HOURS
  2. ONAPGO [Suspect]
     Active Substance: APOMORPHINE HYDROCHLORIDE
     Indication: Dyskinesia
     Dosage: 98MG ONCE DAILY
     Route: 058
     Dates: start: 202509
  3. ONAPGO [Suspect]
     Active Substance: APOMORPHINE HYDROCHLORIDE
     Indication: On and off phenomenon

REACTIONS (3)
  - Nausea [Recovered/Resolved]
  - Somnolence [Recovered/Resolved]
  - Injection site nodule [Recovered/Resolved]

NARRATIVE: CASE EVENT DATE: 20250922
